FAERS Safety Report 19139810 (Version 1)
Quarter: 2021Q2

REPORT INFORMATION
  Report Type: Report from Study
  Country: DE (occurrence: DE)
  Receive Date: 20210415
  Receipt Date: 20210415
  Transmission Date: 20210717
  Serious: Yes (Other)
  Sender: FDA-Public Use
  Company Number: DE-PFIZER INC-2021386626

PATIENT
  Age: 70 Year

DRUGS (4)
  1. AMSACRINE [Suspect]
     Active Substance: AMSACRINE
     Indication: CHRONIC MYELOID LEUKAEMIA
     Dosage: 110 MG/M2 (DAY 3?5)
  2. THIOGUANINE [Suspect]
     Active Substance: THIOGUANINE
     Indication: CHRONIC MYELOID LEUKAEMIA
     Dosage: 200 MG/M2 (DAY 3?9)
  3. CYTARABINE. [Suspect]
     Active Substance: CYTARABINE
     Dosage: 100 MG/M2/30 MIN (DAY 3?8)
  4. CYTARABINE. [Suspect]
     Active Substance: CYTARABINE
     Indication: CHRONIC MYELOID LEUKAEMIA
     Dosage: 100 MG/M2, DAILY (DAY 1+2)

REACTIONS (1)
  - Hepatotoxicity [Unknown]
